FAERS Safety Report 8971467 (Version 1)
Quarter: 2012Q4

REPORT INFORMATION
  Report Type: Report from Study
  Country: DE (occurrence: DE)
  Receive Date: 20121217
  Receipt Date: 20121217
  Transmission Date: 20130627
  Serious: Yes (Hospitalization, Other)
  Sender: FDA-Public Use
  Company Number: DE-BAXTER-2012BAX026882

PATIENT
  Age: 68 Year
  Sex: Male
  Weight: 79 kg

DRUGS (4)
  1. ENDOXAN 1G [Suspect]
     Indication: NON-HODGKIN^S LYMPHOMA
     Route: 065
     Dates: start: 20090202, end: 20090709
  2. ONKOTRONE 30 - CONCENTR? ST?RILE [Suspect]
     Indication: NON-HODGKIN^S LYMPHOMA
     Route: 065
     Dates: start: 20090202, end: 20090707
  3. RITUXIMAB [Suspect]
     Indication: NON-HODGKIN^S LYMPHOMA
     Route: 065
     Dates: start: 20090202, end: 20090714
  4. FLUDARABINE [Suspect]
     Indication: NON-HODGKIN^S LYMPHOMA
     Route: 065
     Dates: start: 20090202, end: 20090709

REACTIONS (6)
  - Diverticular perforation [Recovered/Resolved]
  - Infection [Recovered/Resolved]
  - Haemolytic uraemic syndrome [None]
  - Decreased appetite [None]
  - Gastroenteritis Escherichia coli [None]
  - Candidiasis [None]
